FAERS Safety Report 9156908 (Version 1)
Quarter: 2013Q1

REPORT INFORMATION
  Report Type: Spontaneous
  Country: AT (occurrence: None)
  Receive Date: 20130206
  Receipt Date: 20130206
  Transmission Date: 20140127
  Serious: Yes (Hospitalization, Other)
  Sender: FDA-Public Use
  Company Number: FK201300368

PATIENT
  Age: 54 Year
  Sex: Female

DRUGS (3)
  1. HEPARIN [Suspect]
     Indication: THROMBOSIS PROPHYLAXIS
  2. LEPIRUDIN (LEPIRUDIN) [Concomitant]
  3. FRUSEMIDE [Concomitant]

REACTIONS (10)
  - Acute myocardial infarction [None]
  - Cardiogenic shock [None]
  - Ventricular tachycardia [None]
  - Hypotension [None]
  - Heparin-induced thrombocytopenia [None]
  - Coronary artery thrombosis [None]
  - Heparin-induced thrombocytopenia test [None]
  - Pulmonary congestion [None]
  - Mitral valve incompetence [None]
  - Right ventricular hypertrophy [None]
